FAERS Safety Report 5147089-2 (Version None)
Quarter: 2006Q4

REPORT INFORMATION
  Report Type: 
  Country: None (occurrence: None)
  Receive Date: 20061103
  Receipt Date: 20061024
  Transmission Date: 20070319
  Serious: Yes (Other)
  Sender: FDA-Public Use
  Company Number: 15046

PATIENT
  Age: 9 Year
  Sex: Female

DRUGS (3)
  1. METHOTREXATE [Suspect]
     Indication: JUVENILE ARTHRITIS
     Dosage: 2.5 MG WEEKLY
  2. PREDNISONE TAB [Concomitant]
  3. NAPROXEN [Concomitant]

REACTIONS (2)
  - EPSTEIN-BARR VIRUS TEST POSITIVE [None]
  - HODGKIN'S DISEASE [None]
